FAERS Safety Report 9969047 (Version 1)
Quarter: 2014Q1

REPORT INFORMATION
  Report Type: Report from Study
  Country: US (occurrence: US)
  Receive Date: 20140306
  Receipt Date: 20140306
  Transmission Date: 20141002
  Serious: No
  Sender: FDA-Public Use
  Company Number: US-ABBVIE-13P-163-1145220-00

PATIENT
  Age: 64 Year
  Sex: Female

DRUGS (12)
  1. HUMIRA [Suspect]
     Indication: COLITIS ULCERATIVE
     Dates: start: 20130603
  2. ENTOCORT EC [Concomitant]
     Indication: COLITIS ULCERATIVE
  3. VERAPAMIL [Concomitant]
     Indication: HYPERTENSION
  4. TRILIPIX [Concomitant]
     Indication: HYPERCHOLESTEROLAEMIA
  5. NEXIUM [Concomitant]
     Indication: COLITIS ULCERATIVE
  6. HCTZ [Concomitant]
     Indication: HYPERTENSION
  7. CITALOPRAM [Concomitant]
     Indication: DEPRESSION
  8. WELLBUTRIN [Concomitant]
     Indication: DEPRESSION
  9. AMBIEN [Concomitant]
     Indication: PRODUCT USED FOR UNKNOWN INDICATION
     Dosage: AT BEDTIME
  10. PHENERGAN [Concomitant]
     Indication: NAUSEA
  11. HYOSCYAMINE [Concomitant]
     Indication: ABDOMINAL PAIN UPPER
  12. KLONOPIN [Concomitant]
     Indication: PRODUCT USED FOR UNKNOWN INDICATION

REACTIONS (1)
  - Injection site haemorrhage [Recovered/Resolved]
